FAERS Safety Report 14434088 (Version 1)
Quarter: 2018Q1

REPORT INFORMATION
  Report Type: Spontaneous
  Country: US (occurrence: US)
  Receive Date: 20180124
  Receipt Date: 20180124
  Transmission Date: 20180509
  Serious: No
  Sender: FDA-Public Use
  Company Number: US-ABBVIE-17K-163-1836370-00

PATIENT
  Age: 13 Year
  Sex: Male

DRUGS (2)
  1. HUMIRA [Suspect]
     Active Substance: ADALIMUMAB
     Indication: CROHN^S DISEASE
     Route: 058
     Dates: start: 201609, end: 20161230
  2. HUMIRA [Suspect]
     Active Substance: ADALIMUMAB
     Route: 058
     Dates: start: 20170106

REACTIONS (2)
  - Drug level decreased [Not Recovered/Not Resolved]
  - Drug dispensing error [Recovered/Resolved]

NARRATIVE: CASE EVENT DATE: 201612
